FAERS Safety Report 20075860 (Version 2)
Quarter: 2022Q4

REPORT INFORMATION
  Report Type: Spontaneous
  Country: US (occurrence: US)
  Receive Date: 20211116
  Receipt Date: 20221111
  Transmission Date: 20230112
  Serious: No
  Sender: FDA-Public Use
  Company Number: US-NOVOPROD-849082

PATIENT
  Age: 73 Year
  Sex: Female

DRUGS (2)
  1. TRESIBA [Suspect]
     Active Substance: INSULIN DEGLUDEC
     Indication: Diabetes mellitus
     Dosage: 42 UNITS/DAY
     Route: 058
     Dates: start: 20190101
  2. TRESIBA [Suspect]
     Active Substance: INSULIN DEGLUDEC
     Indication: Glycosylated haemoglobin increased
     Dosage: INCREASED DOSE
     Route: 058

REACTIONS (5)
  - Vision blurred [Not Recovered/Not Resolved]
  - Diabetic neuropathy [Not Recovered/Not Resolved]
  - Weight decreased [Not Recovered/Not Resolved]
  - Blood glucose increased [Not Recovered/Not Resolved]
  - Product use complaint [Not Recovered/Not Resolved]

NARRATIVE: CASE EVENT DATE: 20200101
